FAERS Safety Report 18932110 (Version 1)
Quarter: 2021Q1

REPORT INFORMATION
  Report Type: Spontaneous
  Country: US (occurrence: US)
  Receive Date: 20210223
  Receipt Date: 20210223
  Transmission Date: 20210420
  Serious: No
  Sender: FDA-Public Use
  Company Number: US-ROCHE-2729923

PATIENT
  Sex: Male

DRUGS (1)
  1. EVRYSDI [Suspect]
     Active Substance: RISDIPLAM
     Indication: SPINAL MUSCULAR ATROPHY
     Dosage: MULTI?DOSE VIAL,0.75 MG/1 ML (POWDER FOR ORAL SOLUTION)
     Route: 048
     Dates: start: 20200914

REACTIONS (2)
  - No adverse event [Unknown]
  - Product dispensing error [Unknown]
